FAERS Safety Report 8805812 (Version 1)
Quarter: 2012Q4

REPORT INFORMATION
  Report Type: 
  Country: US (occurrence: None)
  Receive Date: 20120919
  Receipt Date: 20120919
  Transmission Date: 20130627
  Serious: No
  Sender: FDA-Public Use
  Company Number: None

PATIENT
  Sex: Female

DRUGS (2)
  1. CEFUROXIME [Suspect]
  2. CIPROFLOXACIN [Suspect]
     Dosage: 400 mg in 200 mL Injectable

REACTIONS (11)
  - Vomiting projectile [None]
  - Nausea [None]
  - Wrong drug administered [None]
  - Drug ineffective [None]
  - Arthralgia [None]
  - Pain in extremity [None]
  - Paraesthesia [None]
  - Arthralgia [None]
  - Arthralgia [None]
  - Paraesthesia [None]
  - Arthralgia [None]
